FAERS Safety Report 7237831-9 (Version None)
Quarter: 2011Q1

REPORT INFORMATION
  Report Type: 
  Country: None (occurrence: None)
  Receive Date: 20110121
  Receipt Date: 20110113
  Transmission Date: 20110831
  Serious: Yes (Other)
  Sender: FDA-Public Use
  Company Number: US-ASTRAZENECA-2008UW12263

PATIENT
  Age: 47 Year
  Sex: Female
  Weight: 83 kg

DRUGS (21)
  1. SEROQUEL [Suspect]
     Dosage: 25MG-100 MG
     Route: 048
     Dates: start: 20031111
  2. METOPROLOL TARTRATE [Concomitant]
     Dates: start: 20040228
  3. PLAVIX [Concomitant]
     Dates: start: 20040305
  4. VICODIN [Concomitant]
     Dates: start: 20040412
  5. SEROQUEL [Suspect]
     Route: 048
     Dates: start: 20040209
  6. LITHIUM [Concomitant]
  7. LEXAPRO [Concomitant]
     Dosage: 10 MG-50 MG
     Dates: start: 20031014
  8. TRICOR [Concomitant]
     Dosage: 145 MG DAILY, 160 MG DISPENSED
     Dates: start: 20040228
  9. ACTOS [Concomitant]
     Dates: start: 20040412
  10. SYNTHROID [Concomitant]
     Dates: start: 20031014
  11. DIAZEPAM [Concomitant]
     Dosage: 10 MG-30 MG
     Dates: start: 20031014
  12. LEVOXYL [Concomitant]
     Dosage: 150 MCG DAILY, 175 MCG DISPENSED
     Dates: start: 20040218
  13. ASPIRIN [Concomitant]
     Dates: start: 20060609
  14. DIAZEPAM [Concomitant]
     Dates: start: 20040209
  15. LEXAPRO [Concomitant]
     Dates: start: 20040209
  16. LIPITOR [Concomitant]
     Dates: start: 20060609
  17. LOVASTATIN [Concomitant]
     Dates: start: 20040309
  18. NABUMETONE [Concomitant]
     Dates: start: 20040218
  19. BEXTRA [Concomitant]
     Dates: start: 20040305
  20. SEROQUEL [Suspect]
     Indication: BIPOLAR DISORDER
     Dosage: 25 MG, 100 MG
     Route: 048
     Dates: start: 20020101, end: 20060201
  21. KLONOPIN [Concomitant]
     Dosage: 0.5 MG-3 MG
     Dates: start: 20031014

REACTIONS (18)
  - PAIN [None]
  - HEADACHE [None]
  - NASOPHARYNGITIS [None]
  - THYROID DISORDER [None]
  - HYPERPROLACTINAEMIA [None]
  - BLOOD CHOLESTEROL INCREASED [None]
  - HYPERTENSION [None]
  - CARDIOVASCULAR DISORDER [None]
  - MYOCARDIAL INFARCTION [None]
  - TYPE 2 DIABETES MELLITUS [None]
  - DEPRESSION [None]
  - BACK PAIN [None]
  - HYPERTHYROIDISM [None]
  - FATIGUE [None]
  - CARDIAC DISORDER [None]
  - HYPOTHYROIDISM [None]
  - HYPERLIPIDAEMIA [None]
  - BLOOD PRESSURE ABNORMAL [None]
